FAERS Safety Report 15102620 (Version 2)
Quarter: 2019Q2

REPORT INFORMATION
  Report Type: Spontaneous
  Country: US (occurrence: US)
  Receive Date: 20180703
  Receipt Date: 20190404
  Transmission Date: 20190711
  Serious: No
  Sender: FDA-Public Use
  Company Number: US-SA-2018SA178485

PATIENT
  Age: 16 Year
  Sex: Male

DRUGS (3)
  1. CEREZYME [Suspect]
     Active Substance: IMIGLUCERASE
     Dosage: 4400 UNK
     Route: 041
     Dates: start: 20190210, end: 20190210
  2. CEREZYME [Suspect]
     Active Substance: IMIGLUCERASE
     Indication: GAUCHER^S DISEASE
     Dosage: 4400 U, QW
     Route: 041
     Dates: start: 20100410, end: 20180512
  3. CEREZYME [Suspect]
     Active Substance: IMIGLUCERASE
     Dosage: 4400 UNK
     Route: 041

REACTIONS (2)
  - Malaise [Unknown]
  - Pyrexia [Unknown]

NARRATIVE: CASE EVENT DATE: 20180512
